FAERS Safety Report 21490239 (Version 3)
Quarter: 2024Q1

REPORT INFORMATION
  Report Type: Other
  Country: DE (occurrence: None)
  Receive Date: 20221021
  Receipt Date: 20240108
  Transmission Date: 20240410
  Serious: No
  Sender: FDA-Public Use
  Company Number: DE-ROCHE-3076515

PATIENT
  Sex: Female

DRUGS (1)
  1. OCREVUS [Suspect]
     Active Substance: OCRELIZUMAB
     Indication: Relapsing-remitting multiple sclerosis
     Dosage: 300 MG AT DAY 0 AND 15, THEN 600 MG EVERY 6 MONTH
     Route: 042
     Dates: start: 20220222

REACTIONS (6)
  - Fatigue [Recovered/Resolved]
  - Nausea [Unknown]
  - Blood iron decreased [Recovered/Resolved]
  - COVID-19 [Recovered/Resolved]
  - Insomnia [Recovered/Resolved]
  - Skin disorder [Unknown]

NARRATIVE: CASE EVENT DATE: 20220222
